FAERS Safety Report 12689207 (Version 20)
Quarter: 2022Q2

REPORT INFORMATION
  Report Type: Spontaneous
  Country: CA (occurrence: None)
  Receive Date: 20160826
  Receipt Date: 20220503
  Transmission Date: 20220721
  Serious: Yes (Hospitalization, Other)
  Sender: FDA-Public Use
  Company Number: CA-ORION CORPORATION ORION PHARMA-TREX2016-1434

PATIENT
  Age: 62 Year
  Sex: Female
  Weight: 72 kg

DRUGS (62)
  1. METHOTREXATE [Suspect]
     Active Substance: METHOTREXATE
     Indication: Rheumatoid arthritis
     Route: 065
  2. METHOTREXATE [Suspect]
     Active Substance: METHOTREXATE
     Route: 065
  3. METHOTREXATE [Suspect]
     Active Substance: METHOTREXATE
     Route: 048
  4. METHOTREXATE [Suspect]
     Active Substance: METHOTREXATE
     Route: 048
  5. ENBREL [Suspect]
     Active Substance: ETANERCEPT
     Indication: Rheumatoid arthritis
     Dosage: 2 EVERY 1 WEEKS
     Route: 058
     Dates: start: 20030127, end: 2005
  6. ENBREL [Suspect]
     Active Substance: ETANERCEPT
     Dosage: 2 TIMES/WEEK
     Route: 058
     Dates: start: 2004, end: 2005
  7. ENBREL [Suspect]
     Active Substance: ETANERCEPT
     Dosage: Q2WEEK
     Route: 058
  8. ENBREL [Suspect]
     Active Substance: ETANERCEPT
     Route: 058
  9. ENBREL [Suspect]
     Active Substance: ETANERCEPT
     Route: 058
  10. ENBREL [Suspect]
     Active Substance: ETANERCEPT
     Dosage: 2 TIMES/WEEK
     Route: 058
  11. ENBREL [Suspect]
     Active Substance: ETANERCEPT
     Route: 065
  12. ENBREL [Suspect]
     Active Substance: ETANERCEPT
     Dosage: Q2WEEK
     Route: 058
  13. ENBREL [Suspect]
     Active Substance: ETANERCEPT
     Route: 065
  14. ENBREL [Suspect]
     Active Substance: ETANERCEPT
     Route: 058
  15. ENBREL [Suspect]
     Active Substance: ETANERCEPT
     Route: 058
  16. ENBREL [Suspect]
     Active Substance: ETANERCEPT
     Route: 058
  17. ENBREL [Suspect]
     Active Substance: ETANERCEPT
     Route: 065
  18. ENBREL [Suspect]
     Active Substance: ETANERCEPT
     Route: 065
  19. ENBREL [Suspect]
     Active Substance: ETANERCEPT
     Route: 065
  20. ENBREL [Suspect]
     Active Substance: ETANERCEPT
     Dosage: ONE EVERY TWO WEEKS
     Route: 065
  21. REMICADE [Suspect]
     Active Substance: INFLIXIMAB
     Indication: Product used for unknown indication
     Route: 042
  22. REMICADE [Suspect]
     Active Substance: INFLIXIMAB
     Route: 042
     Dates: start: 20060301, end: 200704
  23. ACTEMRA [Suspect]
     Active Substance: TOCILIZUMAB
     Indication: Product used for unknown indication
     Route: 065
     Dates: start: 201402, end: 201412
  24. ACTEMRA [Suspect]
     Active Substance: TOCILIZUMAB
     Route: 058
  25. ACTEMRA [Suspect]
     Active Substance: TOCILIZUMAB
     Route: 042
  26. ARAVA [Suspect]
     Active Substance: LEFLUNOMIDE
     Indication: Product used for unknown indication
     Route: 065
  27. CYCLOSPORINE [Suspect]
     Active Substance: CYCLOSPORINE
     Indication: Product used for unknown indication
     Route: 065
  28. IMURAN [Suspect]
     Active Substance: AZATHIOPRINE
     Indication: Product used for unknown indication
     Route: 065
  29. ORENCIA [Suspect]
     Active Substance: ABATACEPT
     Indication: Product used for unknown indication
     Route: 042
  30. ORENCIA [Suspect]
     Active Substance: ABATACEPT
     Route: 065
  31. ORENCIA [Suspect]
     Active Substance: ABATACEPT
     Route: 065
     Dates: start: 201106, end: 201401
  32. ORENCIA [Suspect]
     Active Substance: ABATACEPT
     Route: 058
  33. ORENCIA [Suspect]
     Active Substance: ABATACEPT
     Route: 058
  34. ORENCIA [Suspect]
     Active Substance: ABATACEPT
     Route: 065
     Dates: start: 201106, end: 201401
  35. RITUXAN [Suspect]
     Active Substance: RITUXIMAB
     Indication: Product used for unknown indication
     Route: 042
  36. RITUXAN [Suspect]
     Active Substance: RITUXIMAB
     Route: 065
     Dates: start: 20090703, end: 201009
  37. GOLD SODIUM THIOMALATE [Suspect]
     Active Substance: GOLD SODIUM THIOMALATE
     Indication: Product used for unknown indication
     Route: 030
  38. AZATHIOPRINE [Suspect]
     Active Substance: AZATHIOPRINE
     Indication: Product used for unknown indication
     Route: 065
  39. SULFASALAZINE [Suspect]
     Active Substance: SULFASALAZINE
     Indication: Rheumatoid arthritis
     Route: 048
  40. SULFASALAZINE [Suspect]
     Active Substance: SULFASALAZINE
     Route: 065
  41. CYCLOSPORINE [Suspect]
     Active Substance: CYCLOSPORINE
     Indication: Product used for unknown indication
     Route: 065
  42. AZATHIOPRINE [Suspect]
     Active Substance: AZATHIOPRINE
     Indication: Product used for unknown indication
     Route: 065
  43. INFLIXIMAB [Suspect]
     Active Substance: INFLIXIMAB
     Indication: Product used for unknown indication
     Route: 042
     Dates: start: 20060301, end: 200704
  44. INFLIXIMAB [Suspect]
     Active Substance: INFLIXIMAB
     Route: 065
  45. GOLD [Suspect]
     Active Substance: GOLD
     Indication: Product used for unknown indication
     Route: 065
  46. GOLD [Suspect]
     Active Substance: GOLD
     Route: 030
  47. RITUXIMAB [Suspect]
     Active Substance: RITUXIMAB
     Indication: Product used for unknown indication
     Route: 042
  48. RITUXIMAB [Suspect]
     Active Substance: RITUXIMAB
     Route: 041
  49. ANAKINRA [Suspect]
     Active Substance: ANAKINRA
     Indication: Product used for unknown indication
     Route: 065
  50. HYDROXYCHLOROQUINE SULFATE [Suspect]
     Active Substance: HYDROXYCHLOROQUINE SULFATE
     Indication: Product used for unknown indication
     Route: 065
  51. LEFLUNOMIDE [Suspect]
     Active Substance: LEFLUNOMIDE
     Indication: Product used for unknown indication
     Route: 065
  52. LEFLUNOMIDE [Suspect]
     Active Substance: LEFLUNOMIDE
     Route: 065
  53. LEFLUNOMIDE [Suspect]
     Active Substance: LEFLUNOMIDE
     Indication: Product used for unknown indication
     Route: 065
  54. HUMIRA [Suspect]
     Active Substance: ADALIMUMAB
     Indication: Rheumatoid arthritis
     Route: 058
  55. HUMIRA [Suspect]
     Active Substance: ADALIMUMAB
     Route: 058
  56. HUMIRA [Suspect]
     Active Substance: ADALIMUMAB
     Route: 058
  57. HUMIRA [Suspect]
     Active Substance: ADALIMUMAB
     Route: 058
  58. XELJANZ [Suspect]
     Active Substance: TOFACITINIB CITRATE
     Indication: Product used for unknown indication
     Route: 065
  59. HYDROXYCHLOROQUINE [Suspect]
     Active Substance: HYDROXYCHLOROQUINE
     Indication: Product used for unknown indication
     Route: 065
  60. SIMPONI [Suspect]
     Active Substance: GOLIMUMAB
     Indication: Product used for unknown indication
     Route: 058
  61. SIMPONI [Suspect]
     Active Substance: GOLIMUMAB
     Route: 058
  62. MELOXICAM [Concomitant]
     Active Substance: MELOXICAM
     Route: 048

REACTIONS (16)
  - Drug ineffective [Not Recovered/Not Resolved]
  - Contraindicated product administered [Not Recovered/Not Resolved]
  - Therapeutic response decreased [Not Recovered/Not Resolved]
  - Treatment failure [Not Recovered/Not Resolved]
  - Drug hypersensitivity [Not Recovered/Not Resolved]
  - Diabetes mellitus [Not Recovered/Not Resolved]
  - Impaired gastric emptying [Not Recovered/Not Resolved]
  - Renal impairment [Not Recovered/Not Resolved]
  - Rheumatoid arthritis [Not Recovered/Not Resolved]
  - Demyelination [Not Recovered/Not Resolved]
  - Ankylosing spondylitis [Not Recovered/Not Resolved]
  - Condition aggravated [Not Recovered/Not Resolved]
  - Influenza [Not Recovered/Not Resolved]
  - Arthropathy [Not Recovered/Not Resolved]
  - Drug intolerance [Not Recovered/Not Resolved]
  - Hypersensitivity [Not Recovered/Not Resolved]

NARRATIVE: CASE EVENT DATE: 20030219
